FAERS Safety Report 8796602 (Version 3)
Quarter: 2012Q4

REPORT INFORMATION
  Report Type: 
  Country: US (occurrence: US)
  Receive Date: 20120920
  Receipt Date: 20121017
  Transmission Date: 20130627
  Serious: Yes (Hospitalization)
  Sender: FDA-Public Use
  Company Number: US-009507513-1209USA003782

PATIENT
  Age: 76 Year
  Sex: Male
  Weight: 86.7 kg

DRUGS (3)
  1. VORINOSTAT [Suspect]
     Indication: ACUTE MYELOID LEUKAEMIA
     Dosage: 400 mg, qd on days 1-9
     Route: 048
     Dates: start: 20120831, end: 20120904
  2. AZACITIDINE [Suspect]
     Indication: ACUTE MYELOID LEUKAEMIA
     Dosage: 75 mg/m2, qd SC or IV on days 1-7
     Route: 058
     Dates: start: 20120831, end: 20120904
  3. MYLOTARG [Suspect]
     Indication: ACUTE MYELOID LEUKAEMIA
     Dosage: 3 over 2 hrs on day 4 and 8
     Route: 042
     Dates: start: 20120903, end: 20120903

REACTIONS (2)
  - Myocardial infarction [Recovering/Resolving]
  - Acute myocardial infarction [None]
